FAERS Safety Report 13974181 (Version 1)
Quarter: 2017Q3

REPORT INFORMATION
  Report Type: Spontaneous
  Country: US (occurrence: US)
  Receive Date: 20170915
  Receipt Date: 20170915
  Transmission Date: 20171128
  Serious: No
  Sender: FDA-Public Use
  Company Number: US-BAUSCH-BL-2017-022311

PATIENT
  Age: 63 Year
  Sex: Male

DRUGS (3)
  1. EFUDEX [Suspect]
     Active Substance: FLUOROURACIL
     Indication: PAPULE
     Dosage: STARTED WEEKS PRIOR TO THIS REPORT
     Route: 061
  2. EFUDEX [Suspect]
     Active Substance: FLUOROURACIL
     Route: 061
     Dates: start: 201705
  3. EFUDEX [Suspect]
     Active Substance: FLUOROURACIL
     Indication: MALIGNANT MELANOMA
     Dosage: STARTED SEVERAL YEARS PRIOR TO THIS REPORT
     Route: 061

REACTIONS (4)
  - Expired product administered [Unknown]
  - Chemical burn [Not Recovered/Not Resolved]
  - Pruritus [Unknown]
  - Off label use [Unknown]

NARRATIVE: CASE EVENT DATE: 201706
